FAERS Safety Report 9066774 (Version 1)
Quarter: 2013Q1

REPORT INFORMATION
  Report Type: Spontaneous
  Country: US (occurrence: US)
  Receive Date: 20130214
  Receipt Date: 20130214
  Transmission Date: 20140127
  Serious: Yes (Death)
  Sender: FDA-Public Use
  Company Number: US-GLAXOSMITHKLINE-A1012069A

PATIENT
  Age: 70 Year
  Sex: Male

DRUGS (16)
  1. VOTRIENT [Suspect]
     Indication: RENAL CANCER
     Dosage: 800MG PER DAY
     Route: 048
     Dates: start: 20120919, end: 20130201
  2. METFORMIN [Concomitant]
  3. WARFARIN [Concomitant]
  4. SPIRONOLACTONE [Concomitant]
  5. MAGNESIUM + CALCIUM [Concomitant]
  6. POTASSIUM [Concomitant]
  7. NITROGLYCERIN [Concomitant]
  8. METOLAZONE [Concomitant]
  9. LEVOTHYROXINE [Concomitant]
  10. FUROSEMIDE [Concomitant]
  11. FINASTERIDE [Concomitant]
  12. FERROUS SULFATE [Concomitant]
  13. CARVEDILOL [Concomitant]
  14. ALLOPURINOL [Concomitant]
  15. HYDROCODONE [Concomitant]
  16. FLUOXETINE [Concomitant]

REACTIONS (1)
  - Death [Fatal]
